FAERS Safety Report 22016990 (Version 3)
Quarter: 2023Q2

REPORT INFORMATION
  Report Type: Spontaneous
  Country: GB (occurrence: GB)
  Receive Date: 20230221
  Receipt Date: 20230602
  Transmission Date: 20230722
  Serious: Yes (Death, Hospitalization, Other)
  Sender: FDA-Public Use
  Company Number: GB-AMNEAL PHARMACEUTICALS-2023-AMRX-00594

PATIENT
  Age: 57 Year
  Sex: Male
  Weight: 89.9 kg

DRUGS (8)
  1. ALYMSYS [Suspect]
     Active Substance: BEVACIZUMAB-MALY
     Indication: Hepatocellular carcinoma
     Dosage: 1400 MILLIGRAM
     Route: 065
     Dates: start: 20221221
  2. ATEZOLIZUMAB [Suspect]
     Active Substance: ATEZOLIZUMAB
     Indication: Hepatocellular carcinoma
     Dosage: 1200 MILLIGRAM
     Route: 041
     Dates: start: 20221221, end: 20230111
  3. AMITRIPTYLINE [Concomitant]
     Active Substance: AMITRIPTYLINE
     Indication: Product used for unknown indication
     Dosage: UNK
     Route: 065
  4. ATORVASTATIN [Concomitant]
     Active Substance: ATORVASTATIN
     Indication: Product used for unknown indication
     Dosage: UNK
     Route: 065
  5. METFORMIN [Concomitant]
     Active Substance: METFORMIN HYDROCHLORIDE
     Indication: Product used for unknown indication
     Dosage: UNK
     Route: 065
  6. OMEPRAZOLE [Concomitant]
     Active Substance: OMEPRAZOLE
     Indication: Product used for unknown indication
     Dosage: UNK
     Route: 065
  7. OXYCODONE [Concomitant]
     Active Substance: OXYCODONE
     Indication: Product used for unknown indication
     Dosage: UNK
     Route: 065
  8. RAMIPRIL [Concomitant]
     Active Substance: RAMIPRIL
     Indication: Product used for unknown indication
     Dosage: UNK
     Route: 065

REACTIONS (3)
  - Adverse event [Fatal]
  - Sepsis [Not Recovered/Not Resolved]
  - Hypercalcaemia [Not Recovered/Not Resolved]

NARRATIVE: CASE EVENT DATE: 20230127
